FAERS Safety Report 8158262-3 (Version None)
Quarter: 2012Q1

REPORT INFORMATION
  Report Type: 
  Country: None (occurrence: None)
  Receive Date: 20120223
  Receipt Date: 20120215
  Transmission Date: 20120608
  Serious: Yes (Hospitalization, Other)
  Sender: FDA-Public Use
  Company Number: US-BIOGENIDEC-2011BI025752

PATIENT
  Age: 39 Year
  Sex: Female
  Weight: 82 kg

DRUGS (3)
  1. GABAPENTIN [Concomitant]
  2. AVONEX [Suspect]
     Indication: MULTIPLE SCLEROSIS
     Route: 030
     Dates: start: 20100217
  3. GABAPENTIN [Concomitant]
     Dates: start: 20120214

REACTIONS (3)
  - CENTRAL NERVOUS SYSTEM LESION [None]
  - PETIT MAL EPILEPSY [None]
  - GRAND MAL CONVULSION [None]
